FAERS Safety Report 21174197 (Version 1)
Quarter: 2022Q3

REPORT INFORMATION
  Report Type: Spontaneous
  Country: US (occurrence: US)
  Receive Date: 20220804
  Receipt Date: 20220804
  Transmission Date: 20221027
  Serious: No
  Sender: FDA-Public Use
  Company Number: US-MAYNE PHARMA-2022MYN000020

PATIENT
  Age: 64 Year
  Sex: Female

DRUGS (2)
  1. NYSTATIN [Suspect]
     Active Substance: NYSTATIN
     Indication: Cellulitis
     Dosage: UNK, BID
     Route: 061
     Dates: start: 20220125
  2. NYSTATIN [Suspect]
     Active Substance: NYSTATIN
     Indication: Fungal infection

REACTIONS (2)
  - Pruritus [Unknown]
  - Rash [Unknown]

NARRATIVE: CASE EVENT DATE: 20220125
